FAERS Safety Report 14964761 (Version 1)
Quarter: 2018Q2

REPORT INFORMATION
  Report Type: Spontaneous
  Country: US (occurrence: US)
  Receive Date: 20180601
  Receipt Date: 20180601
  Transmission Date: 20180711
  Serious: No
  Sender: FDA-Public Use
  Company Number: US-TEVA-2018-US-897936

PATIENT
  Sex: Male

DRUGS (1)
  1. TESTOSTERONE CYP [Suspect]
     Active Substance: TESTOSTERONE CYPIONATE
     Indication: BLOOD TESTOSTERONE DECREASED
     Dosage: 0.3ML PER WEEK
     Dates: start: 2008

REACTIONS (2)
  - Blood testosterone decreased [Unknown]
  - Product use issue [Unknown]
